FAERS Safety Report 10253754 (Version 2)
Quarter: 2014Q3

REPORT INFORMATION
  Report Type: Spontaneous
  Country: GB (occurrence: GB)
  Receive Date: 20140623
  Receipt Date: 20140701
  Transmission Date: 20150326
  Serious: Yes (Hospitalization, Congenital Anomaly)
  Sender: FDA-Public Use
  Company Number: GB-PFIZER INC-2014169938

PATIENT
  Sex: Male

DRUGS (5)
  1. MISOPROSTOL. [Suspect]
     Active Substance: MISOPROSTOL
     Indication: ABORTION INDUCED
     Dosage: 800 UG, ONCE DAILY
     Route: 064
     Dates: start: 20131020, end: 20131020
  2. AZITHROMYCIN [Concomitant]
     Active Substance: AZITHROMYCIN ANHYDROUS
     Indication: PROPHYLAXIS
     Dosage: 1 G, ONCE DAILY
     Route: 064
     Dates: start: 20131020, end: 20131020
  3. PARACETAMOL [Concomitant]
     Active Substance: ACETAMINOPHEN
     Indication: PAIN
     Dosage: 1 G, UNK
     Route: 064
     Dates: start: 20131020
  4. MIFEPRISTONE [Suspect]
     Active Substance: MIFEPRISTONE
     Indication: ABORTION INDUCED
     Dosage: 200 MG, ONCE DAILY
     Route: 064
     Dates: start: 20131018, end: 20131018
  5. METRONIDAZOLE. [Concomitant]
     Active Substance: METRONIDAZOLE
     Indication: PROPHYLAXIS
     Dosage: 800 MG, ONCE DAILY
     Route: 064
     Dates: start: 20131020, end: 20131020

REACTIONS (2)
  - Maternal exposure during pregnancy [Unknown]
  - Cleft lip and palate [Unknown]

NARRATIVE: CASE EVENT DATE: 201310
